FAERS Safety Report 13368192 (Version 1)
Quarter: 2017Q1

REPORT INFORMATION
  Report Type: Report from Study
  Country: JP (occurrence: JP)
  Receive Date: 20170324
  Receipt Date: 20170324
  Transmission Date: 20170429
  Serious: Yes (Death, Life-Threatening, Hospitalization)
  Sender: FDA-Public Use
  Company Number: PHHY2010JP098497

PATIENT
  Age: 78 Year
  Sex: Female
  Weight: 50 kg

DRUGS (17)
  1. MEXITIL [Suspect]
     Active Substance: MEXILETINE HYDROCHLORIDE
     Dosage: 200 MG, QD
     Route: 048
     Dates: start: 20091105, end: 20091109
  2. OXYCODONE HYDROCHLORIDE. [Concomitant]
     Active Substance: OXYCODONE HYDROCHLORIDE
     Indication: PAIN MANAGEMENT
     Dosage: QD
     Route: 048
     Dates: end: 20091120
  3. MEXITIL [Suspect]
     Active Substance: MEXILETINE HYDROCHLORIDE
     Dosage: 400 MG, QD
     Route: 048
     Dates: start: 20091002, end: 20091014
  4. REBAMIPIDE [Concomitant]
     Active Substance: REBAMIPIDE
     Indication: PAIN MANAGEMENT
     Dosage: QD
     Route: 048
     Dates: end: 20091120
  5. IFENPRODIL TARTRATE [Concomitant]
     Active Substance: IFENPRODIL TARTRATE
     Indication: PAIN MANAGEMENT
     Dosage: QD
     Route: 048
     Dates: end: 20091120
  6. TYKERB [Suspect]
     Active Substance: LAPATINIB DITOSYLATE
     Indication: BREAST CANCER
     Dosage: 1250 MG, QD
     Route: 048
     Dates: start: 20091015, end: 20091120
  7. BETAMETHASONE. [Concomitant]
     Active Substance: BETAMETHASONE
     Indication: PAIN MANAGEMENT
     Dosage: 1 DF, QD
     Route: 048
     Dates: end: 20091120
  8. OXINORM [Concomitant]
     Active Substance: OXYCODONE HYDROCHLORIDE
     Indication: PAIN MANAGEMENT
     Dosage: QD
     Route: 048
     Dates: end: 20091120
  9. OXYCODONE HYDROCHLORIDE. [Concomitant]
     Active Substance: OXYCODONE HYDROCHLORIDE
     Indication: PRODUCT USED FOR UNKNOWN INDICATION
     Route: 065
  10. MEXITIL [Suspect]
     Active Substance: MEXILETINE HYDROCHLORIDE
     Indication: NEURALGIA
     Dosage: 300 MG, QD
     Route: 048
     Dates: start: 20090907, end: 20091001
  11. XELODA [Suspect]
     Active Substance: CAPECITABINE
     Indication: PRODUCT USED FOR UNKNOWN INDICATION
     Dosage: 2400 MG, QD
     Route: 048
     Dates: start: 20091016, end: 20091030
  12. MEXITIL [Suspect]
     Active Substance: MEXILETINE HYDROCHLORIDE
     Dosage: 200 MG, QD
     Route: 048
     Dates: start: 20091015, end: 20091029
  13. MEXITIL [Suspect]
     Active Substance: MEXILETINE HYDROCHLORIDE
     Dosage: 300 MG, QD
     Route: 048
     Dates: start: 20091030, end: 20091104
  14. ETODOLAC. [Concomitant]
     Active Substance: ETODOLAC
     Indication: PAIN MANAGEMENT
     Dosage: QD
     Route: 048
     Dates: end: 20091120
  15. GABAPENTIN. [Concomitant]
     Active Substance: GABAPENTIN
     Indication: PAIN MANAGEMENT
     Dosage: QD
     Route: 048
     Dates: end: 20091120
  16. MAG OXIDE [Concomitant]
     Active Substance: MAGNESIUM OXIDE
     Indication: CONSTIPATION
     Dosage: QD
     Route: 048
     Dates: end: 20091120
  17. FENTANYL. [Concomitant]
     Active Substance: FENTANYL
     Indication: PAIN MANAGEMENT
     Dosage: QD
     Route: 062
     Dates: end: 20091120

REACTIONS (5)
  - Sepsis [Not Recovered/Not Resolved]
  - Breast cancer [Fatal]
  - Drug level increased [Recovered/Resolved]
  - Ileus [Not Recovered/Not Resolved]
  - Abdominal distension [Unknown]

NARRATIVE: CASE EVENT DATE: 20091029
